FAERS Safety Report 8297788-9 (Version None)
Quarter: 2012Q2

REPORT INFORMATION
  Report Type: 
  Country: None (occurrence: None)
  Receive Date: 20120419
  Receipt Date: 20120417
  Transmission Date: 20120825
  Serious: Yes (Death)
  Sender: FDA-Public Use
  Company Number: CA-SANOFI-AVENTIS-2012SA026882

PATIENT
  Age: 68 Year
  Sex: Male
  Weight: 80 kg

DRUGS (7)
  1. HYDROMORPHONE HCL [Concomitant]
     Route: 048
     Dates: start: 20120201
  2. LORAZEPAM [Concomitant]
     Route: 048
     Dates: start: 20110301
  3. PREDNISONE TAB [Concomitant]
     Indication: PROPHYLAXIS
     Route: 048
     Dates: start: 20090609
  4. CABAZITAXEL [Suspect]
     Indication: PROSTATE CANCER
     Route: 042
     Dates: start: 20120403, end: 20120403
  5. PREDNISONE TAB [Suspect]
     Indication: PROSTATE CANCER
     Route: 065
     Dates: start: 20120403
  6. ZOMETA [Concomitant]
     Route: 042
     Dates: start: 20090609
  7. MAXERAN [Concomitant]
     Route: 048
     Dates: start: 20120330

REACTIONS (1)
  - DEATH [None]
